FAERS Safety Report 4679972-6 (Version None)
Quarter: 2005Q2

REPORT INFORMATION
  Report Type: 
  Country: None (occurrence: None)
  Receive Date: 20050531
  Receipt Date: 20050516
  Transmission Date: 20051028
  Serious: Yes (Other)
  Sender: FDA-Public Use
  Company Number: 2005076084

PATIENT
  Age: 2 Year
  Sex: Male
  Weight: 11.7935 kg

DRUGS (1)
  1. VIAGRA [Suspect]
     Indication: ACCIDENTAL EXPOSURE
     Dosage: ORAL TIME), ORAL
     Route: 048
     Dates: start: 20050513, end: 20050513

REACTIONS (7)
  - ACCIDENTAL DRUG INTAKE BY CHILD [None]
  - DIARRHOEA [None]
  - ERECTION INCREASED [None]
  - FLUSHING [None]
  - PENILE PAIN [None]
  - PENIS DISORDER [None]
  - SKIN DISCOLOURATION [None]
